FAERS Safety Report 10259588 (Version 2)
Quarter: 2014Q2

REPORT INFORMATION
  Report Type: Report from Study
  Country: BR (occurrence: BR)
  Receive Date: 20140625
  Receipt Date: 20140625
  Transmission Date: 20141212
  Serious: Yes (Hospitalization, Other)
  Sender: FDA-Public Use
  Company Number: BR-ABBVIE-13P-020-1040710-00

PATIENT
  Age: 75 Year
  Sex: Female
  Weight: 65 kg

DRUGS (10)
  1. HUMIRA [Suspect]
     Indication: CROHN^S DISEASE
     Dosage: WEEK 0
     Route: 058
     Dates: start: 20120802
  2. PURAN T4 [Concomitant]
     Indication: HYPOTHYROIDISM
     Route: 048
     Dates: start: 2003
  3. PANTOPRAZOLE [Concomitant]
     Indication: GASTRIC DISORDER
     Route: 048
     Dates: start: 2003
  4. PANTOPRAZOLE [Concomitant]
     Indication: PROPHYLAXIS
  5. TENOFOVIR [Concomitant]
     Indication: HEPATITIS
     Route: 048
     Dates: start: 201208
  6. TENOFOVIR [Concomitant]
     Indication: HEPATITIS
  7. OMEPRAZOLE [Concomitant]
     Indication: GASTRITIS
     Route: 048
  8. OMEPRAZOLE [Concomitant]
     Indication: GASTRIC DISORDER
  9. OMEPRAZOLE [Concomitant]
     Indication: PROPHYLAXIS
  10. AZATHIOPRINE [Concomitant]
     Indication: CROHN^S DISEASE
     Route: 048
     Dates: start: 20120802

REACTIONS (21)
  - Asthenia [Recovering/Resolving]
  - Muscle spasms [Recovering/Resolving]
  - Abdominal distension [Recovering/Resolving]
  - Hypophagia [Recovering/Resolving]
  - Anaemia [Recovering/Resolving]
  - Gastrointestinal motility disorder [Recovering/Resolving]
  - Pain in extremity [Recovering/Resolving]
  - Abdominal pain upper [Recovering/Resolving]
  - Abdominal pain [Recovering/Resolving]
  - Enteritis [Unknown]
  - Enteritis [Recovering/Resolving]
  - Iron deficiency anaemia [Recovering/Resolving]
  - Asthenia [Recovering/Resolving]
  - Gait disturbance [Recovering/Resolving]
  - Pain [Not Recovered/Not Resolved]
  - Varices oesophageal [Unknown]
  - Intestinal stenosis [Unknown]
  - Diverticulum [Unknown]
  - Oesophageal pain [Unknown]
  - Bone disorder [Unknown]
  - Pain in extremity [Recovering/Resolving]
